FAERS Safety Report 15404224 (Version 1)
Quarter: 2018Q3

REPORT INFORMATION
  Report Type: Spontaneous
  Country: US (occurrence: US)
  Receive Date: 20180919
  Receipt Date: 20180919
  Transmission Date: 20181010
  Serious: No
  Sender: FDA-Public Use
  Company Number: US-BAUSCH-BL-2018-018449

PATIENT
  Age: 28 Year
  Sex: Female

DRUGS (1)
  1. EYE ALLERGY RELIEF [Suspect]
     Active Substance: NAPHAZOLINE HYDROCHLORIDE\PHENIRAMINE MALEATE
     Indication: PRODUCT USED FOR UNKNOWN INDICATION
     Dosage: TWICE
     Route: 065
     Dates: start: 20180628, end: 20180629

REACTIONS (1)
  - Mydriasis [Recovered/Resolved]

NARRATIVE: CASE EVENT DATE: 20180629
